FAERS Safety Report 14371900 (Version 1)
Quarter: 2018Q1

REPORT INFORMATION
  Report Type: Spontaneous
  Country: ES (occurrence: ES)
  Receive Date: 20180110
  Receipt Date: 20180110
  Transmission Date: 20180509
  Serious: Yes (Life-Threatening, Other)
  Sender: FDA-Public Use
  Company Number: ES-PFIZER INC-2018010353

PATIENT
  Age: 71 Year
  Sex: Female

DRUGS (6)
  1. MEROPENEM. [Suspect]
     Active Substance: MEROPENEM
     Indication: PNEUMONIA
     Dosage: 2 G, 8H
     Route: 042
     Dates: start: 20170216
  2. IPRATROPIUM BROMIDE. [Concomitant]
     Active Substance: IPRATROPIUM BROMIDE
     Indication: PNEUMONIA
     Dosage: 500 UG, 8 H
     Route: 055
     Dates: start: 20170202, end: 20170327
  3. LINEZOLID. [Suspect]
     Active Substance: LINEZOLID
     Indication: PNEUMONIA
     Dosage: 600 MG, 12 H
     Route: 042
     Dates: start: 20170214, end: 20170217
  4. SALBUAIR [Concomitant]
     Indication: PNEUMONIA
     Dosage: 2.5 MG, 8H
     Route: 055
     Dates: start: 20170202, end: 20170227
  5. PIPERACILLIN/TAZOBACTAM [Interacting]
     Active Substance: PIPERACILLIN SODIUM\TAZOBACTAM SODIUM
     Indication: PNEUMONIA
     Dosage: 4 G, 8H
     Route: 042
     Dates: start: 20170202, end: 20170214
  6. CLEXANE [Concomitant]
     Active Substance: ENOXAPARIN SODIUM
     Dosage: 40 MG, 24H
     Route: 058
     Dates: start: 20170202, end: 20170327

REACTIONS (4)
  - Drug interaction [Recovered/Resolved with Sequelae]
  - Relapsing fever [Recovered/Resolved with Sequelae]
  - Dyspnoea [Recovered/Resolved with Sequelae]
  - Leukopenia [Recovered/Resolved with Sequelae]

NARRATIVE: CASE EVENT DATE: 20170217
